FAERS Safety Report 7218744-5 (Version None)
Quarter: 2011Q1

REPORT INFORMATION
  Report Type: 
  Country: None (occurrence: None)
  Receive Date: 20110110
  Receipt Date: 20100211
  Transmission Date: 20110831
  Serious: No
  Sender: FDA-Public Use
  Company Number: US-ABBOTT-10P-163-0626333-00

PATIENT
  Sex: Female
  Weight: 83.99 kg

DRUGS (5)
  1. VICODIN [Suspect]
     Indication: KNEE ARTHROPLASTY
     Route: 048
     Dates: start: 20091215, end: 20100204
  2. ATENOLOL [Concomitant]
     Indication: HYPERTENSION
     Route: 048
  3. FLECAINIDE [Concomitant]
     Indication: HEART RATE IRREGULAR
     Route: 048
  4. VICODIN [Suspect]
     Route: 048
     Dates: start: 20100205, end: 20100208
  5. PRILOSEC [Concomitant]
     Indication: REFLUX GASTRITIS

REACTIONS (4)
  - FEELING ABNORMAL [None]
  - PARAESTHESIA [None]
  - HOT FLUSH [None]
  - COLD SWEAT [None]
